FAERS Safety Report 10912813 (Version 5)
Quarter: 2015Q2

REPORT INFORMATION
  Report Type: Spontaneous
  Country: JP (occurrence: JP)
  Receive Date: 20150313
  Receipt Date: 20150615
  Transmission Date: 20150821
  Serious: Yes (Death, Other)
  Sender: FDA-Public Use
  Company Number: JP-PFIZER INC-2015085197

PATIENT
  Age: 69 Year
  Sex: Male
  Weight: 60 kg

DRUGS (13)
  1. OLMETEC [Concomitant]
     Active Substance: OLMESARTAN MEDOXOMIL
     Dosage: 20 MG, 1X/DAY
     Route: 048
     Dates: end: 20150304
  2. CELECOX [Suspect]
     Active Substance: CELECOXIB
     Indication: PAIN
     Dosage: 100 MG, 2X/DAY
     Route: 048
     Dates: start: 20150215, end: 20150228
  3. TRICHLORMETHIAZIDE [Concomitant]
     Active Substance: TRICHLORMETHIAZIDE
     Dosage: 1 MG, 1X/DAY
     Route: 048
     Dates: end: 20150304
  4. TENOMILOL [Concomitant]
     Dosage: 50 MG, DAILY
     Route: 048
     Dates: end: 20150304
  5. INLYTA [Suspect]
     Active Substance: AXITINIB
     Indication: METASTATIC RENAL CELL CARCINOMA
     Dosage: 5 MG, 2X/DAY
     Route: 048
     Dates: start: 20150206, end: 20150303
  6. FAMOTIDINE. [Concomitant]
     Active Substance: FAMOTIDINE
     Dosage: 20 MG, 1X/DAY
     Route: 048
     Dates: end: 20150304
  7. ALLOPURINOL. [Suspect]
     Active Substance: ALLOPURINOL
     Indication: GOUT
     Dosage: 100 MG, 1X/DAY
     Route: 048
     Dates: end: 20150228
  8. AMLODIPINE [Concomitant]
     Active Substance: AMLODIPINE BESYLATE
     Dosage: 10 MG, 1X/DAY
     Route: 048
     Dates: end: 20150304
  9. FENTOS [Concomitant]
     Active Substance: FENTANYL
     Indication: PAIN
     Dosage: UNK
     Dates: start: 20150306, end: 20150418
  10. CALCIUM LACTATE [Concomitant]
     Active Substance: CALCIUM LACTATE
     Dosage: 0.2 (UNITS UNKNOWN), 3X/DAY
     Route: 048
     Dates: end: 20150304
  11. LASIX [Concomitant]
     Active Substance: FUROSEMIDE
     Dosage: 10 MG, 1X/DAY
     Route: 048
     Dates: end: 20150304
  12. THYRADIN [Concomitant]
     Active Substance: LEVOTHYROXINE
     Dosage: 50 ?G, DAILY
     Route: 048
     Dates: end: 20150304
  13. EDIROL [Concomitant]
     Active Substance: ELDECALCITOL
     Dosage: 0.75 ?G, 1X/DAY
     Route: 048
     Dates: end: 20150304

REACTIONS (3)
  - Toxic epidermal necrolysis [Recovered/Resolved]
  - Metastatic renal cell carcinoma [Fatal]
  - Disease progression [Fatal]

NARRATIVE: CASE EVENT DATE: 20150228
